FAERS Safety Report 5421715-2 (Version None)
Quarter: 2007Q3

REPORT INFORMATION
  Report Type: 
  Country: None (occurrence: None)
  Receive Date: 20070820
  Receipt Date: 20070802
  Transmission Date: 20080115
  Serious: Yes (Hospitalization)
  Sender: FDA-Public Use
  Company Number: ALK_00322_2007

PATIENT
  Sex: Female
  Weight: 58.9676 kg

DRUGS (3)
  1. VIVITROL [Suspect]
     Indication: ALCOHOLISM
     Dosage: (380 MG 1X/MONTH INTRAMUSCULAR)
     Route: 030
     Dates: start: 20070628, end: 20070701
  2. DIOVAN [Concomitant]
  3. PREMARIN [Concomitant]

REACTIONS (10)
  - CELLULITIS [None]
  - DISCOMFORT [None]
  - FAT NECROSIS [None]
  - FOREIGN BODY TRAUMA [None]
  - HEADACHE [None]
  - INJECTION SITE ABSCESS [None]
  - INJECTION SITE PRURITUS [None]
  - INJECTION SITE REACTION [None]
  - NAUSEA [None]
  - POST PROCEDURAL COMPLICATION [None]
